FAERS Safety Report 8604346-2 (Version None)
Quarter: 2012Q3

REPORT INFORMATION
  Report Type: 
  Country: None (occurrence: None)
  Receive Date: 20120820
  Receipt Date: 20120809
  Transmission Date: 20120928
  Serious: Yes (Hospitalization)
  Sender: FDA-Public Use
  Company Number: US-JNJFOC-20120712973

PATIENT
  Sex: Male
  Weight: 58 kg

DRUGS (4)
  1. REMICADE [Suspect]
     Indication: CROHN'S DISEASE
     Route: 042
     Dates: start: 20120626
  2. ALL OTHER THERAPEUTICS [Concomitant]
     Indication: INFLAMMATORY BOWEL DISEASE
     Route: 065
     Dates: start: 20090201
  3. REMICADE [Suspect]
     Dosage: ONCE EVERY 6-8 WEEKS
     Route: 042
     Dates: start: 20100501
  4. CALCIUM CARBONATE [Concomitant]
     Indication: INFLAMMATORY BOWEL DISEASE
     Route: 065
     Dates: start: 20050201

REACTIONS (4)
  - HUMAN ANAPLASMOSIS [None]
  - HYPONATRAEMIA [None]
  - PNEUMONIA [None]
  - HISTIOCYTOSIS HAEMATOPHAGIC [None]
